FAERS Safety Report 13930860 (Version 3)
Quarter: 2017Q3

REPORT INFORMATION
  Report Type: Spontaneous
  Country: US (occurrence: US)
  Receive Date: 20170902
  Receipt Date: 20170911
  Transmission Date: 20171127
  Serious: Yes (Death)
  Sender: FDA-Public Use
  Company Number: US-B.I. PHARMACEUTICALS,INC./RIDGEFIELD-2017-BI-047718

PATIENT
  Age: 62 Year
  Sex: Female

DRUGS (5)
  1. SPIRIVA [Suspect]
     Active Substance: TIOTROPIUM BROMIDE MONOHYDRATE
     Indication: CHRONIC OBSTRUCTIVE PULMONARY DISEASE
     Route: 055
     Dates: start: 2011
  2. TRAMADOL [Concomitant]
     Indication: PAIN
     Route: 065
  3. VALACYCLOVIR [Concomitant]
     Indication: VIRAL INFECTION
     Route: 065
  4. ALBUTEROL [Concomitant]
     Indication: CHRONIC OBSTRUCTIVE PULMONARY DISEASE
     Route: 055
     Dates: start: 201609
  5. LIDOCAINE [Concomitant]
     Indication: PAIN
     Route: 061

REACTIONS (1)
  - Carcinoid syndrome [Fatal]

NARRATIVE: CASE EVENT DATE: 20170814
